FAERS Safety Report 12634194 (Version 1)
Quarter: 2016Q3

REPORT INFORMATION
  Report Type: Spontaneous
  Country: US (occurrence: None)
  Receive Date: 20160808
  Receipt Date: 20160808
  Transmission Date: 20161109
  Serious: Yes (Other)
  Sender: FDA-Public Use
  Company Number: None

PATIENT
  Age: 67 Year
  Sex: Male

DRUGS (5)
  1. METFORMIN [Concomitant]
     Active Substance: METFORMIN HYDROCHLORIDE
  2. GLIPIZIDE. [Concomitant]
     Active Substance: GLIPIZIDE
  3. LANTUS [Concomitant]
     Active Substance: INSULIN GLARGINE
  4. ALLOPURINOL. [Concomitant]
     Active Substance: ALLOPURINOL
  5. ENBREL [Suspect]
     Active Substance: ETANERCEPT
     Indication: PSORIATIC ARTHROPATHY
     Route: 058
     Dates: start: 20140923, end: 20160804

REACTIONS (1)
  - Prostate cancer [None]

NARRATIVE: CASE EVENT DATE: 20160805
